FAERS Safety Report 4928217-8 (Version None)
Quarter: 2006Q1

REPORT INFORMATION
  Report Type: 
  Country: None (occurrence: None)
  Receive Date: 20060127
  Receipt Date: 20051213
  Transmission Date: 20060701
  Serious: Yes (Other)
  Sender: FDA-Public Use
  Company Number: 2005168387

PATIENT
  Age: 36 Year
  Sex: Male

DRUGS (2)
  1. LYRICA [Suspect]
     Indication: NEURALGIA
     Dosage: 50 MG (50 MG, 1 IN 1 D), ORAL
     Route: 048
     Dates: start: 20051212
  2. KLONOPIN [Concomitant]

REACTIONS (4)
  - COORDINATION ABNORMAL [None]
  - FEELING ABNORMAL [None]
  - MALAISE [None]
  - PAIN [None]
